FAERS Safety Report 9614549 (Version 1)
Quarter: 2013Q4

REPORT INFORMATION
  Report Type: Spontaneous
  Country: US (occurrence: None)
  Receive Date: 20131009
  Receipt Date: 20131009
  Transmission Date: 20140711
  Serious: Yes (Other)
  Sender: FDA-Public Use
  Company Number: None

PATIENT
  Age: 21 Year
  Sex: Female
  Weight: 63.9 kg

DRUGS (7)
  1. BELATACEPT [Suspect]
     Indication: IMMUNE THROMBOCYTOPENIC PURPURA
     Dosage: 300MG  Q28DAYS  IV
     Route: 042
     Dates: start: 20121207
  2. BELATACEPT [Suspect]
     Indication: IMMUNOSUPPRESSION
     Dosage: 300MG  Q28DAYS  IV
     Route: 042
     Dates: start: 20121207
  3. VITAMIN D3 [Concomitant]
  4. PROGRAF [Concomitant]
  5. CALCIUM CARBONATE [Concomitant]
  6. ZANTAC [Concomitant]
  7. ZOFRAN [Concomitant]

REACTIONS (7)
  - Rash pruritic [None]
  - Skin burning sensation [None]
  - Pain [None]
  - Dry skin [None]
  - Pseudomonas infection [None]
  - Streptococcal infection [None]
  - Staphylococcal infection [None]
